FAERS Safety Report 19361202 (Version 1)
Quarter: 2021Q2

REPORT INFORMATION
  Report Type: Spontaneous
  Country: US (occurrence: US)
  Receive Date: 20210601
  Receipt Date: 20210601
  Transmission Date: 20210717
  Serious: Yes (Hospitalization, Other)
  Sender: FDA-Public Use
  Company Number: US-SA-2021SA178051

PATIENT
  Sex: Female

DRUGS (7)
  1. CERDELGA [Suspect]
     Active Substance: ELIGLUSTAT
     Indication: GAUCHER^S DISEASE
     Dosage: 14 CAPSULE BLISTER PACK
     Route: 065
     Dates: start: 20180817
  2. ROSUVASTATIN. [Concomitant]
     Active Substance: ROSUVASTATIN
  3. LEVOTHYROXINE. [Concomitant]
     Active Substance: LEVOTHYROXINE
  4. CYANOCOBALAMIN. [Concomitant]
     Active Substance: CYANOCOBALAMIN
  5. CERDELGA [Suspect]
     Active Substance: ELIGLUSTAT
     Dosage: UNK, QD
     Route: 065
  6. GABAPENTIN. [Concomitant]
     Active Substance: GABAPENTIN
  7. AMLODIPINE [Concomitant]
     Active Substance: AMLODIPINE BESYLATE

REACTIONS (2)
  - Dyspepsia [Unknown]
  - Intestinal obstruction [Unknown]
